FAERS Safety Report 13626711 (Version 1)
Quarter: 2017Q2

REPORT INFORMATION
  Report Type: Spontaneous
  Country: FR (occurrence: FR)
  Receive Date: 20170608
  Receipt Date: 20170608
  Transmission Date: 20170830
  Serious: Yes (Death, Hospitalization, Other)
  Sender: FDA-Public Use
  Company Number: FR-SA-2017SA077913

PATIENT
  Age: 62 Year
  Sex: Female

DRUGS (6)
  1. SPIRAMYCIN [Suspect]
     Active Substance: SPIRAMYCIN
     Indication: PNEUMONIA
     Dosage: 3 MIU TWICE A DAY
     Route: 065
     Dates: start: 20130629
  2. CEFOTAXIME SODIUM [Suspect]
     Active Substance: CEFOTAXIME SODIUM
     Indication: PNEUMONIA
     Route: 065
     Dates: start: 20130629
  3. CIPROFLOXACIN. [Suspect]
     Active Substance: CIPROFLOXACIN
     Indication: PNEUMONIA
     Route: 042
     Dates: start: 2013
  4. TAZOBACTAM/PIPERACILLIN [Suspect]
     Active Substance: PIPERACILLIN SODIUM\TAZOBACTAM SODIUM
     Route: 042
     Dates: start: 2013
  5. CIPROFLOXACIN. [Suspect]
     Active Substance: CIPROFLOXACIN
     Indication: PNEUMONIA
     Route: 065
     Dates: start: 20130710
  6. TRIMETHOPRIM/SULFAMETHOXAZOLE [Concomitant]
     Indication: PNEUMONIA
     Route: 042
     Dates: start: 20130710

REACTIONS (16)
  - Hyperlactacidaemia [Fatal]
  - Abdominal distension [Unknown]
  - Leukocytosis [Fatal]
  - Cyanosis [Fatal]
  - Intestinal ischaemia [Fatal]
  - Tachycardia [Fatal]
  - Condition aggravated [Fatal]
  - Large intestine perforation [Unknown]
  - Clostridial sepsis [Fatal]
  - Skin discolouration [Fatal]
  - Abdominal rigidity [Unknown]
  - Hypotension [Fatal]
  - Hypoperfusion [Fatal]
  - Tachypnoea [Unknown]
  - Clostridium bacteraemia [Fatal]
  - Hypothermia [Fatal]

NARRATIVE: CASE EVENT DATE: 2013
